FAERS Safety Report 8054566-3 (Version None)
Quarter: 2012Q1

REPORT INFORMATION
  Report Type: 
  Country: None (occurrence: None)
  Receive Date: 20120119
  Receipt Date: 20120106
  Transmission Date: 20120608
  Serious: Yes (Hospitalization)
  Sender: FDA-Public Use
  Company Number: US-BIOGENIDEC-2009BI037694

PATIENT
  Age: 38 Year
  Sex: Female

DRUGS (3)
  1. SEROQUEL [Concomitant]
  2. AMBIEN [Concomitant]
  3. TYSABRI [Suspect]
     Indication: MULTIPLE SCLEROSIS
     Route: 042
     Dates: start: 20080929

REACTIONS (8)
  - DEPRESSION SUICIDAL [None]
  - PROCEDURAL PAIN [None]
  - MUSCULOSKELETAL DISORDER [None]
  - CONTUSION [None]
  - MENTAL IMPAIRMENT [None]
  - VICTIM OF ABUSE [None]
  - MULTIPLE SCLEROSIS RELAPSE [None]
  - NERVOUSNESS [None]
